FAERS Safety Report 10063218 (Version 3)
Quarter: 2014Q2

REPORT INFORMATION
  Report Type: Spontaneous
  Country: FI (occurrence: FI)
  Receive Date: 20140407
  Receipt Date: 20140630
  Transmission Date: 20141212
  Serious: Yes (Other)
  Sender: FDA-Public Use
  Company Number: FI-ASTELLAS-2014EU003748

PATIENT
  Age: 74 Year
  Sex: Female

DRUGS (1)
  1. BETMIGA [Suspect]
     Indication: URGE INCONTINENCE
     Route: 048
     Dates: start: 20140219

REACTIONS (1)
  - Liver function test abnormal [Recovered/Resolved]
